FAERS Safety Report 9968943 (Version 1)
Quarter: 2014Q1

REPORT INFORMATION
  Report Type: Report from Study
  Country: US (occurrence: US)
  Receive Date: 20140306
  Receipt Date: 20140306
  Transmission Date: 20141002
  Serious: No
  Sender: FDA-Public Use
  Company Number: US-ABBVIE-13P-163-1146148-00

PATIENT
  Age: 41 Year
  Sex: Female

DRUGS (7)
  1. HUMIRA [Suspect]
     Indication: CROHN^S DISEASE
     Dates: start: 20130617
  2. LIALDA [Concomitant]
     Indication: CROHN^S DISEASE
     Dosage: 4 TABLETS DAILY
  3. SYNTHROID [Concomitant]
     Indication: HYPOTHYROIDISM
     Dosage: 1 TABLET DAILY
  4. ORTHONOVUM [Concomitant]
     Indication: CONTRACEPTION
     Dosage: 135 DAILY
  5. ACYCLOVIR [Concomitant]
     Indication: VIRAL INFECTION
     Dosage: 400 MG DAILY
  6. ESCITALOPRAM [Concomitant]
     Indication: DEPRESSION
     Dates: start: 20130827
  7. ESCITALOPRAM [Concomitant]
     Indication: ANXIETY

REACTIONS (3)
  - Ear pain [Not Recovered/Not Resolved]
  - Oropharyngeal pain [Not Recovered/Not Resolved]
  - Productive cough [Not Recovered/Not Resolved]
